FAERS Safety Report 7487417-6 (Version None)
Quarter: 2011Q2

REPORT INFORMATION
  Report Type: 
  Country: None (occurrence: None)
  Receive Date: 20110518
  Receipt Date: 20110503
  Transmission Date: 20111010
  Serious: Yes (Other)
  Sender: FDA-Public Use
  Company Number: DE-JNJFOC-20110502279

PATIENT
  Age: 31 Year
  Sex: Male

DRUGS (2)
  1. INFLIXIMAB, RECOMBINANT [Suspect]
     Indication: COMPLICATIONS OF TRANSPLANT SURGERY
     Route: 042
  2. INFLIXIMAB, RECOMBINANT [Suspect]
     Indication: TRANSPLANT REJECTION
     Route: 042

REACTIONS (2)
  - ALTERNARIA INFECTION [None]
  - FUNGAL INFECTION [None]
